FAERS Safety Report 12909622 (Version 2)
Quarter: 2016Q4

REPORT INFORMATION
  Report Type: Spontaneous
  Country: IT (occurrence: IT)
  Receive Date: 20161104
  Receipt Date: 20161110
  Transmission Date: 20170207
  Serious: Yes (Hospitalization)
  Sender: FDA-Public Use
  Company Number: IT-ROCHE-1850306

PATIENT
  Age: 77 Year
  Sex: Female

DRUGS (6)
  1. DIBASE [Concomitant]
     Active Substance: CHOLECALCIFEROL
     Dosage: 10,000 IU/ML ORAL DROPS, SOLUTION^
     Route: 065
  2. RISEDRONIC ACID [Concomitant]
     Active Substance: RISEDRONIC ACID
  3. ROACTEMRA [Suspect]
     Active Substance: TOCILIZUMAB
     Indication: RHEUMATOID ARTHRITIS
     Dosage: 4 PREFILLED SYRINGES
     Route: 058
  4. VALSARTAN. [Concomitant]
     Active Substance: VALSARTAN
  5. CARDICOR [Concomitant]
     Active Substance: BISOPROLOL
     Dosage: 28 TABLETS IN A 2.5 MG PVC/AL BLISTER PACK
     Route: 065
  6. ZYLORIC [Concomitant]
     Active Substance: ALLOPURINOL
     Dosage: 30 SCORED TABLETS
     Route: 065

REACTIONS (4)
  - Eye discharge [Recovering/Resolving]
  - Hyperpyrexia [Recovering/Resolving]
  - Cellulitis [Recovering/Resolving]
  - Face oedema [Recovering/Resolving]

NARRATIVE: CASE EVENT DATE: 20161018
